FAERS Safety Report 14671283 (Version 1)
Quarter: 2018Q1

REPORT INFORMATION
  Report Type: Spontaneous
  Country: NL (occurrence: NL)
  Receive Date: 20180322
  Receipt Date: 20180322
  Transmission Date: 20180509
  Serious: Yes (Other)
  Sender: FDA-Public Use
  Company Number: NL-ALEMBIC PHARMACUETICALS LIMITED-2018SCAL000196

PATIENT

DRUGS (4)
  1. ITRACONAZOLE. [Suspect]
     Active Substance: ITRACONAZOLE
     Indication: ASPERGILLUS INFECTION
     Dosage: UNK
     Route: 065
  2. VORICONAZOLE. [Interacting]
     Active Substance: VORICONAZOLE
     Indication: ASPERGILLUS INFECTION
     Dosage: 9 MG/K, TID
     Route: 042
  3. VORICONAZOLE. [Interacting]
     Active Substance: VORICONAZOLE
     Dosage: 8MG/KG, TID
     Route: 042
  4. VORICONAZOLE. [Interacting]
     Active Substance: VORICONAZOLE
     Dosage: 6 MG/KG, TID
     Route: 042

REACTIONS (4)
  - Hepatotoxicity [Unknown]
  - Cardiovascular insufficiency [Unknown]
  - Drug level increased [Unknown]
  - Drug interaction [Unknown]
